FAERS Safety Report 6383631-1 (Version None)
Quarter: 2009Q4

REPORT INFORMATION
  Report Type: 
  Country: None (occurrence: None)
  Receive Date: 20091001
  Receipt Date: 20090923
  Transmission Date: 20100525
  Serious: Yes (Hospitalization)
  Sender: FDA-Public Use
  Company Number: US-AVENTIS-200918566US

PATIENT
  Sex: Female

DRUGS (3)
  1. LANTUS [Suspect]
     Route: 058
  2. LANTUS [Suspect]
     Route: 058
     Dates: start: 20030101
  3. UNKNOWN DRUG [Concomitant]
     Indication: NAUSEA
     Dosage: DOSE: UNK

REACTIONS (2)
  - VOMITING [None]
  - WEIGHT DECREASED [None]
